FAERS Safety Report 4679534-0 (Version None)
Quarter: 2005Q2

REPORT INFORMATION
  Report Type: 
  Country: None (occurrence: None)
  Receive Date: 20050531
  Receipt Date: 20050517
  Transmission Date: 20051028
  Serious: Yes (Hospitalization)
  Sender: FDA-Public Use
  Company Number: 11183

PATIENT
  Sex: 0

DRUGS (3)
  1. FLUOROURACIL [Suspect]
     Dosage: 400 MG/M2 PER_CYCLE/2.4 G/M2 PER_CYCLE, INJ
  2. LEUCOVORIN [Suspect]
     Dosage: 400 MG/M2 PER_CYCLE, IV
     Route: 042
  3. OXALIPLATIN [Suspect]
     Dosage: 100 MG/M2 PER_CYCLE IV
     Route: 042

REACTIONS (2)
  - DEHYDRATION [None]
  - DIARRHOEA [None]
